FAERS Safety Report 11457276 (Version 4)
Quarter: 2016Q1

REPORT INFORMATION
  Report Type: Spontaneous
  Country: AR (occurrence: AR)
  Receive Date: 20150904
  Receipt Date: 20160101
  Transmission Date: 20160525
  Serious: Yes (Other)
  Sender: FDA-Public Use
  Company Number: AR-AMGEN-ARGSP2015089629

PATIENT
  Age: 69 Year
  Sex: Female

DRUGS (8)
  1. ENBREL [Suspect]
     Active Substance: ETANERCEPT
     Dosage: UNK
     Route: 065
  2. ENBREL [Suspect]
     Active Substance: ETANERCEPT
     Indication: RHEUMATOID ARTHRITIS
     Dosage: 50 MG, WEEKLY
     Route: 065
     Dates: start: 20140505
  3. NEBICOR [Concomitant]
     Dosage: UNK
     Dates: start: 2014
  4. GASTROMAX                          /00036701/ [Concomitant]
     Dosage: UNK
     Dates: start: 2013
  5. PREGABALIN. [Concomitant]
     Active Substance: PREGABALIN
     Dosage: UNK
     Dates: start: 2013
  6. LEVOTIROXINA [Concomitant]
     Active Substance: LEVOTHYROXINE SODIUM
     Dosage: UNK
     Dates: start: 1996
  7. CALMADOR                           /00141001/ [Concomitant]
     Dosage: UNK
     Dates: start: 2013
  8. MICARDIS [Concomitant]
     Active Substance: TELMISARTAN
     Dosage: UNK
     Dates: start: 2014

REACTIONS (12)
  - Somnolence [Recovered/Resolved]
  - Blister [Not Recovered/Not Resolved]
  - Dizziness [Not Recovered/Not Resolved]
  - Musculoskeletal pain [Recovered/Resolved]
  - Spinal disorder [Recovered/Resolved]
  - Depression [Recovered/Resolved]
  - Cataract [Not Recovered/Not Resolved]
  - Weight fluctuation [Not Recovered/Not Resolved]
  - Fall [Recovered/Resolved]
  - Myopia [Not Recovered/Not Resolved]
  - Presbyopia [Not Recovered/Not Resolved]
  - Laboratory test abnormal [Not Recovered/Not Resolved]

NARRATIVE: CASE EVENT DATE: 201411
